FAERS Safety Report 4433944-5 (Version None)
Quarter: 2004Q3

REPORT INFORMATION
  Report Type: 
  Country: None (occurrence: None)
  Receive Date: 20040825
  Receipt Date: 20040813
  Transmission Date: 20050211
  Serious: Yes (Life-Threatening, Hospitalization)
  Sender: FDA-Public Use
  Company Number: 2002-FF-00562FF

PATIENT
  Age: 11 Day
  Sex: Male

DRUGS (5)
  1. VIRAMUNE [Suspect]
     Indication: HIV INFECTION
     Dosage: MG (200 MG), IU; FROM 23TH
     Route: 015
  2. SUSTIVA [Suspect]
     Dosage: IU; UNTIL 7TH GESTATIONAL WEEK
     Route: 015
  3. COMBIVIR [Suspect]
     Dosage: IU; UNTIL 7TH FROM  23RD GESTATION WEEK
     Route: 015
  4. RETROVIR [Suspect]
     Indication: PROPHYLAXIS AGAINST HIV INFECTION
     Dosage: 200 MG; IV
     Route: 042
     Dates: start: 20020814, end: 20020814
  5. RETROVIR [Suspect]
     Indication: PROPHYLAXIS AGAINST HIV INFECTION
     Dosage: PO
     Route: 048

REACTIONS (10)
  - ANAEMIA MACROCYTIC [None]
  - ANAEMIA NEONATAL [None]
  - CAESAREAN SECTION [None]
  - CARDIAC MURMUR [None]
  - DRUG EXPOSURE DURING PREGNANCY [None]
  - HYPERLACTACIDAEMIA [None]
  - HYPOGLYCAEMIA NEONATAL [None]
  - HYPOTONIA NEONATAL [None]
  - NEONATAL DISORDER [None]
  - NEONATAL TACHYCARDIA [None]
